FAERS Safety Report 4323164-7 (Version None)
Quarter: 2004Q1

REPORT INFORMATION
  Report Type: 
  Country: None (occurrence: None)
  Receive Date: 20040324
  Receipt Date: 20040324
  Transmission Date: 20041129
  Serious: No
  Sender: FDA-Public Use
  Company Number: None

PATIENT
  Age: 42 Year
  Sex: Female

DRUGS (1)
  1. DIFLUCAN [Suspect]
     Indication: CANDIDIASIS
     Dosage: ORAL
     Route: 048
     Dates: start: 20040314

REACTIONS (3)
  - ERYTHEMA [None]
  - NASAL OEDEMA [None]
  - SWELLING FACE [None]
